FAERS Safety Report 10953238 (Version 5)
Quarter: 2016Q1

REPORT INFORMATION
  Report Type: Spontaneous
  Country: US (occurrence: US)
  Receive Date: 20150325
  Receipt Date: 20160223
  Transmission Date: 20160525
  Serious: Yes (Life-Threatening, Hospitalization, Congenital Anomaly, Other)
  Sender: FDA-Public Use
  Company Number: US-ELI_LILLY_AND_COMPANY-US201503006351

PATIENT
  Age: 5 Day

DRUGS (2)
  1. VICODIN [Concomitant]
     Active Substance: ACETAMINOPHEN\HYDROCODONE BITARTRATE
     Indication: PRODUCT USED FOR UNKNOWN INDICATION
     Route: 065
  2. PROZAC [Suspect]
     Active Substance: FLUOXETINE HYDROCHLORIDE
     Indication: PRODUCT USED FOR UNKNOWN INDICATION
     Dosage: UNK UNK, UNKNOWN
     Route: 064

REACTIONS (12)
  - Congenital aortic valve incompetence [Not Recovered/Not Resolved]
  - Congenital aortic stenosis [Not Recovered/Not Resolved]
  - Pneumothorax [Recovered/Resolved]
  - Staphylococcal infection [Unknown]
  - Foetal exposure during pregnancy [Recovered/Resolved]
  - Blood culture positive [Unknown]
  - Large for dates baby [Unknown]
  - Exposure during breast feeding [Unknown]
  - Endotracheal intubation [Recovered/Resolved]
  - Vena cava thrombosis [Unknown]
  - Diaphragmatic paralysis [Recovered/Resolved]
  - Postoperative ileus [Recovered/Resolved]

NARRATIVE: CASE EVENT DATE: 20010917
